FAERS Safety Report 18567398 (Version 2)
Quarter: 2021Q4

REPORT INFORMATION
  Report Type: Spontaneous
  Country: US (occurrence: US)
  Receive Date: 20201202
  Receipt Date: 20211103
  Transmission Date: 20220303
  Serious: No
  Sender: FDA-Public Use
  Company Number: US-SA-2020SA345776

PATIENT
  Age: 22 Year
  Sex: Female

DRUGS (3)
  1. AUBAGIO [Suspect]
     Active Substance: TERIFLUNOMIDE
     Indication: Multiple sclerosis
     Dosage: 14 MG, QD
     Route: 048
     Dates: start: 20201106
  2. AVONEX [Concomitant]
     Active Substance: INTERFERON BETA-1A
  3. DUPIXENT [Concomitant]
     Active Substance: DUPILUMAB

REACTIONS (8)
  - Muscle spasms [Unknown]
  - Condition aggravated [Unknown]
  - Feeling abnormal [Unknown]
  - Condition aggravated [Unknown]
  - Derailment [Unknown]
  - Memory impairment [Unknown]
  - Amnesia [Unknown]
  - Drug ineffective [Unknown]

NARRATIVE: CASE EVENT DATE: 20201101
